FAERS Safety Report 4835633-1 (Version None)
Quarter: 2005Q4

REPORT INFORMATION
  Report Type: 
  Country: None (occurrence: None)
  Receive Date: 20051121
  Receipt Date: 20051028
  Transmission Date: 20060501
  Serious: Yes (Death)
  Sender: FDA-Public Use
  Company Number: WAES 0511USA00864

PATIENT
  Age: 30 Year
  Sex: Male

DRUGS (8)
  1. COZAAR [Suspect]
     Indication: HYPERTENSION
     Dosage: 50 MG/DAILY PO
     Route: 048
     Dates: start: 20010316, end: 20041125
  2. AMLODIPINE BESYLATE [Concomitant]
  3. AMLODIPINE BESYLATE [Concomitant]
  4. AMLODIPINE BESYLATE [Concomitant]
  5. HARNAL [Concomitant]
  6. MG OXIDE [Concomitant]
  7. MG OXIDE [Concomitant]
  8. NORVASC [Concomitant]

REACTIONS (1)
  - DEATH [None]
